FAERS Safety Report 4318535-9 (Version None)
Quarter: 2004Q1

REPORT INFORMATION
  Report Type: 
  Country: None (occurrence: None)
  Receive Date: 20040318
  Receipt Date: 20040123
  Transmission Date: 20041129
  Serious: Yes (Death, Life-Threatening, Hospitalization, Other)
  Sender: FDA-Public Use
  Company Number: PHBS2004JP01299

PATIENT
  Age: 79 Year
  Sex: Female
  Weight: 49 kg

DRUGS (4)
  1. NEORAL [Suspect]
     Indication: APLASTIC ANAEMIA
     Dosage: 200 MG/D
     Route: 048
     Dates: start: 20031006, end: 20040119
  2. PRIMOBOLAN-DEPOT INJ [Concomitant]
     Dosage: 10 MG/D
     Route: 048
     Dates: start: 20031006, end: 20040119
  3. AMLODIN [Concomitant]
     Dosage: 5 MG/D
     Route: 048
     Dates: start: 20031006, end: 20040119
  4. GASTER [Concomitant]
     Dosage: 20 MG/D
     Route: 048
     Dates: start: 20031006, end: 20040119

REACTIONS (19)
  - ANOREXIA [None]
  - ANTITHROMBIN III DECREASED [None]
  - ANURIA [None]
  - BLOOD BILIRUBIN INCREASED [None]
  - BLOOD CREATININE INCREASED [None]
  - BLOOD FIBRINOGEN INCREASED [None]
  - BLOOD UREA INCREASED [None]
  - DEPRESSED LEVEL OF CONSCIOUSNESS [None]
  - DIALYSIS [None]
  - DISSEMINATED INTRAVASCULAR COAGULATION [None]
  - DRUG LEVEL INCREASED [None]
  - FATIGUE [None]
  - FIBRIN DEGRADATION PRODUCTS NORMAL [None]
  - GENERAL PHYSICAL HEALTH DETERIORATION [None]
  - HEPATIC FUNCTION ABNORMAL [None]
  - PLATELET COUNT DECREASED [None]
  - PLEURAL EFFUSION [None]
  - PROTHROMBIN TIME SHORTENED [None]
  - RENAL FAILURE ACUTE [None]
